FAERS Safety Report 11572584 (Version 2)
Quarter: 2015Q4

REPORT INFORMATION
  Report Type: Spontaneous
  Country: US (occurrence: US)
  Receive Date: 20150916
  Receipt Date: 20151027
  Transmission Date: 20160304
  Serious: No
  Sender: FDA-Public Use
  Company Number: US-ELI_LILLY_AND_COMPANY-US200910003678

PATIENT
  Sex: Female

DRUGS (5)
  1. DILTIZEM [Concomitant]
     Dosage: UNK, UNKNOWN
  2. FORTEO [Suspect]
     Active Substance: TERIPARATIDE
     Dosage: UNK, UNKNOWN
  3. DIGOXIN. [Concomitant]
     Active Substance: DIGOXIN
     Dosage: UNK, UNKNOWN
  4. BUMEX [Concomitant]
     Active Substance: BUMETANIDE
     Dosage: UNK, UNKNOWN
  5. FORTEO [Suspect]
     Active Substance: TERIPARATIDE
     Indication: OSTEOPOROSIS
     Dosage: UNK, UNKNOWN

REACTIONS (8)
  - Injection site bruising [Unknown]
  - Hypersensitivity [Unknown]
  - Eyelid oedema [Not Recovered/Not Resolved]
  - Injection site haemorrhage [Unknown]
  - Swollen tongue [Not Recovered/Not Resolved]
  - Joint swelling [Recovering/Resolving]
  - Oedema peripheral [Recovering/Resolving]
  - Abdominal distension [Not Recovered/Not Resolved]
